FAERS Safety Report 10404247 (Version 1)
Quarter: 2014Q1

REPORT INFORMATION
  Report Type: Spontaneous
  Country: US (occurrence: None)
  Receive Date: 20140131
  Receipt Date: 20140131
  Transmission Date: 20141002
  Serious: Yes (Other)
  Sender: FDA-Public Use
  Company Number: 062822

PATIENT
  Sex: Male

DRUGS (4)
  1. KEPPRA [Suspect]
     Indication: CONVULSION
     Route: 048
     Dates: start: 201205, end: 2012
  2. KEPPRA [Suspect]
     Indication: EPILEPSY
     Route: 048
     Dates: start: 201205, end: 2012
  3. CLONOPIN [Concomitant]
  4. DEPAKOTE [Concomitant]

REACTIONS (5)
  - Personality change [None]
  - Weight decreased [None]
  - Mood altered [None]
  - Middle insomnia [None]
  - Underdose [None]
